FAERS Safety Report 7429593-7 (Version None)
Quarter: 2011Q2

REPORT INFORMATION
  Report Type: 
  Country: None (occurrence: None)
  Receive Date: 20110421
  Receipt Date: 20110414
  Transmission Date: 20111010
  Serious: Yes (Hospitalization)
  Sender: FDA-Public Use
  Company Number: B0698184A

PATIENT
  Sex: Female

DRUGS (7)
  1. LAMICTAL [Suspect]
     Indication: EPILEPSY
     Dosage: 50MG PER DAY
     Route: 048
     Dates: start: 20101221, end: 20110203
  2. SILECE [Concomitant]
     Indication: INSOMNIA
     Dosage: 2MG PER DAY
     Route: 048
     Dates: start: 20100610, end: 20110202
  3. SENNOSIDE [Concomitant]
     Indication: CONSTIPATION
     Dosage: 12MG PER DAY
     Route: 048
     Dates: start: 20100610, end: 20110203
  4. AMLODIN [Concomitant]
     Indication: HYPERTENSION
     Dosage: 5MG PER DAY
     Route: 048
     Dates: start: 20100610, end: 20110203
  5. WYPAX [Concomitant]
     Indication: EPILEPSY
     Dosage: 1.5MG PER DAY
     Route: 048
     Dates: start: 20100610, end: 20110203
  6. AKINETON [Concomitant]
     Indication: PARKINSONISM
     Dosage: 3MG PER DAY
     Route: 048
     Dates: start: 20100610, end: 20110203
  7. DEPAKENE [Suspect]
     Indication: EPILEPSY
     Dosage: 440MG PER DAY
     Route: 048
     Dates: start: 20100610, end: 20110203

REACTIONS (8)
  - RASH [None]
  - MOUTH ULCERATION [None]
  - ERYTHEMA [None]
  - STEVENS-JOHNSON SYNDROME [None]
  - SCAB [None]
  - SKIN EXFOLIATION [None]
  - DECREASED APPETITE [None]
  - STOMATITIS [None]
